FAERS Safety Report 23604151 (Version 1)
Quarter: 2024Q1

REPORT INFORMATION
  Report Type: Spontaneous
  Country: US (occurrence: US)
  Receive Date: 20240307
  Receipt Date: 20240307
  Transmission Date: 20240410
  Serious: Yes (Other)
  Sender: FDA-Public Use
  Company Number: US-STRIDES ARCOLAB LIMITED-2023SP004129

PATIENT
  Age: 28 Year
  Sex: Female

DRUGS (7)
  1. HYDROXYZINE HYDROCHLORIDE [Suspect]
     Active Substance: HYDROXYZINE HYDROCHLORIDE
     Indication: Drug withdrawal syndrome
     Dosage: UNK
     Route: 065
     Dates: start: 2021
  2. ESCITALOPRAM [Suspect]
     Active Substance: ESCITALOPRAM OXALATE
     Indication: Drug withdrawal syndrome
     Dosage: UNK
     Route: 065
     Dates: start: 2021
  3. DOMPERIDONE [Concomitant]
     Active Substance: DOMPERIDONE
     Indication: Galactorrhoea
     Dosage: 90 MILLIGRAM/DAY
     Route: 065
     Dates: start: 202106
  4. DOMPERIDONE [Concomitant]
     Active Substance: DOMPERIDONE
     Dosage: 120 MILLIGRAM/DAY (AFTER 2 WEEKS)
     Route: 065
     Dates: start: 2021
  5. DOMPERIDONE [Concomitant]
     Active Substance: DOMPERIDONE
     Dosage: 100 MILLIGRAM/DAY
     Route: 065
     Dates: start: 2021
  6. DOMPERIDONE [Concomitant]
     Active Substance: DOMPERIDONE
     Dosage: UNK, (TAPER WHICH DECREASED THE TOTAL DAILY DOSAGE BY 10MG EACH WEEK)
     Route: 065
     Dates: start: 202109
  7. DOMPERIDONE [Concomitant]
     Active Substance: DOMPERIDONE
     Dosage: 80 MILLIGRAM/DAY
     Route: 065
     Dates: start: 2021

REACTIONS (1)
  - Drug ineffective for unapproved indication [Unknown]

NARRATIVE: CASE EVENT DATE: 20210101
